FAERS Safety Report 10615237 (Version 1)
Quarter: 2014Q4

REPORT INFORMATION
  Report Type: Spontaneous
  Country: US (occurrence: None)
  Receive Date: 20141125
  Receipt Date: 20141125
  Transmission Date: 20150529
  Serious: No
  Sender: FDA-Public Use
  Company Number: None

PATIENT
  Age: 57 Year
  Sex: Male

DRUGS (3)
  1. TRAMADOL [Concomitant]
     Active Substance: TRAMADOL
  2. SUTENT [Suspect]
     Active Substance: SUNITINIB MALATE
     Indication: RENAL CANCER
     Dosage: 37.5MG  DAILY FOR 21 DAYS PO
     Route: 048
     Dates: start: 20140620
  3. DOC-O-LACE [Concomitant]

REACTIONS (1)
  - Daydreaming [None]

NARRATIVE: CASE EVENT DATE: 201410
